FAERS Safety Report 10614702 (Version 20)
Quarter: 2016Q3

REPORT INFORMATION
  Report Type: Report from Study
  Country: CA (occurrence: CA)
  Receive Date: 20141201
  Receipt Date: 20160826
  Transmission Date: 20161109
  Serious: Yes (Other)
  Sender: FDA-Public Use
  Company Number: CA-ROCHE-1296609

PATIENT
  Age: 64 Year
  Sex: Female
  Weight: 94 kg

DRUGS (18)
  1. APO-LANSOPRAZOLE [Concomitant]
     Active Substance: LANSOPRAZOLE
  2. OXYBUTYNIN [Concomitant]
     Active Substance: OXYBUTYNIN
  3. ACTEMRA [Suspect]
     Active Substance: TOCILIZUMAB
     Indication: RHEUMATOID ARTHRITIS
     Route: 042
     Dates: start: 20130312
  4. APO-HYDROXYQUINE [Concomitant]
  5. ACTEMRA [Suspect]
     Active Substance: TOCILIZUMAB
     Route: 042
     Dates: start: 20141229
  6. ACTEMRA [Suspect]
     Active Substance: TOCILIZUMAB
     Route: 042
     Dates: start: 20150126, end: 20160808
  7. CELEBREX [Concomitant]
     Active Substance: CELECOXIB
  8. FOLIC ACID. [Concomitant]
     Active Substance: FOLIC ACID
  9. ACTEMRA [Suspect]
     Active Substance: TOCILIZUMAB
     Route: 042
     Dates: start: 20140513
  10. ELTROXIN [Concomitant]
     Active Substance: LEVOTHYROXINE
  11. TRIMIPRAMINE [Concomitant]
     Active Substance: TRIMIPRAMINE
     Route: 065
  12. ALOE VERA [Concomitant]
     Active Substance: ALOE VERA LEAF
     Indication: DYSPEPSIA
     Route: 065
  13. ACTEMRA [Suspect]
     Active Substance: TOCILIZUMAB
     Route: 042
     Dates: start: 20130409
  14. SENNOSIDE [Concomitant]
     Active Substance: SENNOSIDES
  15. ACTEMRA [Suspect]
     Active Substance: TOCILIZUMAB
     Route: 042
     Dates: start: 20131106
  16. ACTEMRA [Suspect]
     Active Substance: TOCILIZUMAB
     Route: 042
     Dates: start: 20150120
  17. MAVIK [Concomitant]
     Active Substance: TRANDOLAPRIL
  18. LENOLTEC #3 [Concomitant]

REACTIONS (14)
  - Blood test abnormal [Unknown]
  - Blood test abnormal [Unknown]
  - Weight increased [Recovered/Resolved]
  - Hypotension [Unknown]
  - Heart rate decreased [Unknown]
  - Nasopharyngitis [Recovered/Resolved]
  - Abdominal pain [Unknown]
  - Rheumatoid arthritis [Not Recovered/Not Resolved]
  - Cholelithiasis [Recovered/Resolved]
  - Weight increased [Unknown]
  - Blood pressure increased [Unknown]
  - Blood pressure systolic increased [Unknown]
  - Infusion related reaction [Unknown]
  - Blood pressure increased [Unknown]

NARRATIVE: CASE EVENT DATE: 201310
